FAERS Safety Report 20845354 (Version 2)
Quarter: 2022Q2

REPORT INFORMATION
  Report Type: Report from Study
  Country: US (occurrence: US)
  Receive Date: 20220518
  Receipt Date: 20220520
  Transmission Date: 20220721
  Serious: Yes (Other)
  Sender: FDA-Public Use
  Company Number: US-NOVARTISPH-NVSC2022US109107

PATIENT
  Sex: Female

DRUGS (2)
  1. COSENTYX [Suspect]
     Active Substance: SECUKINUMAB
     Indication: Axial spondyloarthritis
     Dosage: 1 DOSAGE FORM, QW (300 MG/ML)
     Route: 065
  2. COSENTYX [Suspect]
     Active Substance: SECUKINUMAB
     Dosage: UNK, QMO (ONCE A WEEK FOR 5 WEEKS THEN ONCE)
     Route: 058
     Dates: start: 20220505

REACTIONS (14)
  - Syncope [Unknown]
  - Hyperglycaemia [Unknown]
  - Gait disturbance [Unknown]
  - Pain [Not Recovered/Not Resolved]
  - Mouth ulceration [Not Recovered/Not Resolved]
  - Blood glucose decreased [Unknown]
  - Anger [Unknown]
  - Frustration tolerance decreased [Unknown]
  - Arthralgia [Not Recovered/Not Resolved]
  - Fatigue [Unknown]
  - Somnolence [Unknown]
  - Vulvovaginal mycotic infection [Unknown]
  - Hot flush [Unknown]
  - Axial spondyloarthritis [Unknown]
